FAERS Safety Report 9651832 (Version 1)
Quarter: 2013Q4

REPORT INFORMATION
  Report Type: Spontaneous
  Country: US (occurrence: None)
  Receive Date: 20131028
  Receipt Date: 20131028
  Transmission Date: 20140711
  Serious: Yes (Hospitalization)
  Sender: FDA-Public Use
  Company Number: None

PATIENT
  Age: 64 Year
  Sex: Male
  Weight: 90.7 kg

DRUGS (10)
  1. WARFARIN 5 MG [Suspect]
     Indication: CARDIAC VALVE PROSTHESIS USER
  2. SALMETROL AND FLUTICASONE [Concomitant]
  3. DIGOXIN [Concomitant]
  4. IRON [Concomitant]
  5. FUROSEMIDE [Concomitant]
  6. LISINOPRIL [Concomitant]
  7. OMEGA 3 [Concomitant]
  8. ETHYL ESTERS [Concomitant]
  9. METOPROLOL [Concomitant]
  10. POTASSIUM CHLORIDE [Concomitant]

REACTIONS (5)
  - Confusional state [None]
  - Cerebral haematoma [None]
  - Vasogenic cerebral oedema [None]
  - Somnolence [None]
  - Aspiration [None]
